FAERS Safety Report 23742314 (Version 1)
Quarter: 2024Q2

REPORT INFORMATION
  Report Type: Spontaneous
  Country: US (occurrence: None)
  Receive Date: 20240413
  Receipt Date: 20240413
  Transmission Date: 20240715
  Serious: No
  Sender: FDA-Public Use
  Company Number: None

PATIENT
  Age: 42 Year
  Sex: Male
  Weight: 40.4 kg

DRUGS (1)
  1. XELODA [Suspect]
     Active Substance: CAPECITABINE

REACTIONS (17)
  - Asthenia [None]
  - Diarrhoea [None]
  - Nausea [None]
  - Blood pressure decreased [None]
  - Blood sodium decreased [None]
  - Blood creatinine decreased [None]
  - Intestinal dilatation [None]
  - Enterocolitis [None]
  - Gastrointestinal wall thickening [None]
  - Ileus [None]
  - Generalised oedema [None]
  - Malnutrition [None]
  - Radiation injury [None]
  - Adverse drug reaction [None]
  - Small intestinal obstruction [None]
  - Treatment failure [None]
  - Fall [None]

NARRATIVE: CASE EVENT DATE: 20240307
